FAERS Safety Report 8808026 (Version 1)
Quarter: 2012Q4

REPORT INFORMATION
  Report Type: 
  Country: US (occurrence: US)
  Receive Date: 20120925
  Receipt Date: 20120925
  Transmission Date: 20130627
  Serious: Yes (Death)
  Sender: FDA-Public Use
  Company Number: US-ROCHE-1123411

PATIENT
  Sex: Male

DRUGS (6)
  1. AVASTIN [Suspect]
     Indication: BRAIN NEOPLASM MALIGNANT
     Route: 065
     Dates: start: 20070118
  2. AVASTIN [Suspect]
     Route: 065
     Dates: start: 20070202
  3. AVASTIN [Suspect]
     Route: 065
     Dates: start: 20070222
  4. AVASTIN [Suspect]
     Route: 065
     Dates: start: 20070308
  5. AVASTIN [Suspect]
     Route: 065
     Dates: start: 20070405
  6. IRINOTECAN [Concomitant]
     Route: 065
     Dates: start: 20070118

REACTIONS (1)
  - Death [Fatal]
